FAERS Safety Report 8506021-1 (Version None)
Quarter: 2012Q3

REPORT INFORMATION
  Report Type: 
  Country: None (occurrence: None)
  Receive Date: 20120712
  Receipt Date: 20120706
  Transmission Date: 20120928
  Serious: Yes (Other)
  Sender: FDA-Public Use
  Company Number: US-BAYER-2012-068497

PATIENT

DRUGS (2)
  1. ALEVE (CAPLET) [Suspect]
     Indication: PRODUCT USED FOR UNKNOWN INDICATION
     Dosage: BOTTEL COUNT: NOT REPORTED
     Route: 048
  2. XANAX [Suspect]

REACTIONS (3)
  - CHOKING [None]
  - OESOPHAGEAL DISCOMFORT [None]
  - FOREIGN BODY [None]
